FAERS Safety Report 9417776 (Version 1)
Quarter: 2013Q3

REPORT INFORMATION
  Report Type: Spontaneous
  Country: FR (occurrence: FR)
  Receive Date: 20130724
  Receipt Date: 20130724
  Transmission Date: 20140515
  Serious: Yes (Other)
  Sender: FDA-Public Use
  Company Number: FR-GLAXOSMITHKLINE-B0908218A

PATIENT
  Age: 90 Year
  Sex: Female

DRUGS (8)
  1. ARIXTRA [Suspect]
     Indication: PRODUCT USED FOR UNKNOWN INDICATION
     Route: 058
     Dates: start: 20130515, end: 20130522
  2. HEPARINE CHOAY [Suspect]
     Indication: PRODUCT USED FOR UNKNOWN INDICATION
     Dosage: 3000IU PER DAY
     Route: 042
     Dates: start: 20130523, end: 20130525
  3. LIDOCAIN [Concomitant]
  4. PREVISCAN (FLUINDIONE) [Concomitant]
  5. ACTRAPID [Concomitant]
  6. LASILIX [Concomitant]
  7. PARIET [Concomitant]
  8. SINTRON [Concomitant]

REACTIONS (1)
  - Heparin-induced thrombocytopenia [Recovered/Resolved]
